FAERS Safety Report 4554356-X (Version None)
Quarter: 2004Q4

REPORT INFORMATION
  Report Type: 
  Country: None (occurrence: None)
  Receive Date: 20041222
  Receipt Date: 20041111
  Transmission Date: 20050328
  Serious: No
  Sender: FDA-Public Use
  Company Number: 210364

PATIENT
  Age: 78 Year
  Sex: Male

DRUGS (5)
  1. AVASTIN [Suspect]
     Indication: COLON CANCER
     Dosage: 5 MG/KG, Q2W, UNK
     Dates: start: 20040501
  2. FLUOROURACIL [Suspect]
     Indication: COLON CANCER
     Dosage: 300 MG/M2
     Dates: start: 20040101
  3. LEUCOVORIN CALCIUM [Suspect]
     Indication: COLON CANCER
     Dosage: 300 MG/M2
     Dates: start: 20040101
  4. HYDROCHLOROTHIAZIDE [Concomitant]
  5. PLAVIX [Concomitant]

REACTIONS (1)
  - PLATELET COUNT DECREASED [None]
